FAERS Safety Report 6306029-0 (Version None)
Quarter: 2009Q3

REPORT INFORMATION
  Report Type: 
  Country: None (occurrence: None)
  Receive Date: 20090812
  Receipt Date: 20090806
  Transmission Date: 20100115
  Serious: Yes (Other)
  Sender: FDA-Public Use
  Company Number: US-JNJFOC-20090802883

PATIENT
  Age: 56 Year
  Sex: Female
  Weight: 48.08 kg

DRUGS (3)
  1. PEPCID AC [Suspect]
     Dosage: OVER A SIX MONTH PERIOD (DOSING PER PHYSICIAN)
     Route: 048
  2. PEPCID AC [Suspect]
     Indication: GASTRITIS EROSIVE
     Dosage: 40MG IN THE AM AND 40MG IN THE PM AS DIRECTED BY HER PHYSICIAN
     Route: 048
  3. ZEGERID [Concomitant]
     Indication: OESOPHAGEAL DISORDER
     Dosage: TOOK FOR 4 DAYS

REACTIONS (3)
  - DECREASED APPETITE [None]
  - FUNGAL INFECTION [None]
  - WEIGHT DECREASED [None]
